FAERS Safety Report 10429356 (Version 1)
Quarter: 2014Q2

REPORT INFORMATION
  Report Type: Spontaneous
  Country: US (occurrence: None)
  Receive Date: 20140604
  Receipt Date: 20140604
  Transmission Date: 20141212
  Serious: Yes (Hospitalization)
  Sender: FDA-Public Use
  Company Number: 163-POMAL-14022363

PATIENT
  Age: 60 Year
  Sex: Female
  Weight: 59.9 kg

DRUGS (23)
  1. POMALYST (POMALIDOMIDE) (4 MILLIGRAM, CAPSULES) [Suspect]
     Indication: PLASMA CELL MYELOMA
     Dosage: 4 MG, 21 IN 28 D, PO?
     Route: 048
     Dates: start: 20131203
  2. PROAIR HFA (SALBUTAMOL SULFATE) (UNKNOWN) [Concomitant]
  3. NEUPOGEN (FILGRASTIM) (UNKNOWN) [Concomitant]
  4. DEXAMETHASONE (DEXAMETHASONE) (UNKNOWN) [Concomitant]
  5. LEVALBUTEROL (LEVOSALBUTAMOL) (UNKNOWN) [Concomitant]
  6. VERAPAMIL ER (VERAPAMIL) (UNKNOWN) [Concomitant]
  7. HYDROCODONE-ACETAMINOPHEN (VICODIN) (UNKNOWN) [Concomitant]
  8. POTASSIUM CHLORIDE (POTASSIUM CHLORIDE) (UNKNOWN) [Concomitant]
  9. FENTANYL (FENTANYL) (UNKNOWN) (FENTANYL) [Concomitant]
  10. GABAPENTIN (GABAPENTIN) (UNKNOWN) (GABAPENTIN) [Concomitant]
  11. HYDROMORPHONE (HYDROMORPHONE) (UNKNOWN) (HYDROMORPHONE) [Concomitant]
  12. VALACYCLOVIR (VALACICLOVIR HYDROCHLORIDE) (UNKNOWN) [Concomitant]
  13. VITAMIN B-6 (PYRIDOXINE HYDROCHLORIDE)  (UNKNOWN) [Concomitant]
  14. AMITRIPTYLINE (AMITRIPTYLINE) (UNKNOWN) [Concomitant]
  15. OMEPRAZOLE (OMEPRAZOLE) (UNKNOWN) [Concomitant]
  16. SYSTANE (RHINARIS) (UNKNOWN) [Concomitant]
  17. ZOLPIDEM (ZOLPIDEM) (UNKNOWN) (ZOLPIDEM) [Concomitant]
  18. ASPIRIN (ACETYLSALICYLIC ACID) (UNKNOWN) (ACETYLSALICYLIC ACID) [Concomitant]
  19. CALC IUM (CALCIUM) (UNKNOWN) [Concomitant]
  20. COLACE (DOCUSATE SODIUM) (UNKNOWN) [Concomitant]
  21. FOLIC ACID (FOLIC ACID) (UNKNOWN) [Concomitant]
  22. MULTIVITAMINS (MULTIVITAMINS) (UNKNOWN) [Concomitant]
  23. FURSOSEMIDE (FUROSEMIDE) (UNKNOWN) [Concomitant]

REACTIONS (2)
  - Plasma cell myeloma [None]
  - Renal impairment [None]
